FAERS Safety Report 13678216 (Version 1)
Quarter: 2017Q2

REPORT INFORMATION
  Report Type: Spontaneous
  Country: US (occurrence: US)
  Receive Date: 20170621
  Receipt Date: 20170621
  Transmission Date: 20170830
  Serious: Yes (Disabling)
  Sender: FDA-Public Use
  Company Number: None

PATIENT
  Age: 62 Year
  Sex: Female
  Weight: 62.1 kg

DRUGS (1)
  1. ATIVAN [Suspect]
     Active Substance: LORAZEPAM
     Indication: PRODUCT USED FOR UNKNOWN INDICATION

REACTIONS (6)
  - Panic attack [None]
  - Menometrorrhagia [None]
  - Agoraphobia [None]
  - Anxiety [None]
  - Drug tolerance [None]
  - Hysterectomy [None]

NARRATIVE: CASE EVENT DATE: 19880804
